FAERS Safety Report 5323073-0 (Version None)
Quarter: 2007Q2

REPORT INFORMATION
  Report Type: 
  Country: None (occurrence: None)
  Receive Date: 20070507
  Receipt Date: 20070424
  Transmission Date: 20071010
  Serious: Yes (Death)
  Sender: FDA-Public Use
  Company Number: 07H-163-0312277-00

PATIENT
  Age: 28 Day
  Sex: Male
  Weight: 1.0161 kg

DRUGS (18)
  1. DEXTROSE [Suspect]
     Indication: DRUG USE FOR UNKNOWN INDICATION
     Dosage: INTRAVENOUS
     Route: 042
     Dates: start: 20070131, end: 20070131
  2. CALCIUM GLUCONATE [Suspect]
     Indication: DRUG USE FOR UNKNOWN INDICATION
     Dosage: INTRAVENOUS
     Route: 042
     Dates: start: 20070131, end: 20070131
  3. HEPARIN [Suspect]
     Indication: DRUG USE FOR UNKNOWN INDICATION
     Dosage: INTRAVENOUS
     Route: 042
     Dates: start: 20070131, end: 20070131
  4. OXYGEN (OXYGEN) [Concomitant]
  5. ALBUTEROL [Concomitant]
  6. AMPICILLIN [Concomitant]
  7. CALCIUM GLUCONATE [Concomitant]
  8. CALCIUM CITRATE (CALCIUM CITRATE) [Concomitant]
  9. CALFACTANT (CALFACTANT) [Concomitant]
  10. ERYTHROMYCIN OPTHAL OINTMENT [Concomitant]
  11. GENTAMICIN SULFATE [Concomitant]
  12. PHYTONDIONE (PHYTOMENADIONE) [Concomitant]
  13. SODIUM BICARBONATE IN PLASTIC CONTAINER [Concomitant]
  14. FENTANYL [Concomitant]
  15. DEXTROSE 10% [Concomitant]
  16. HEPARIN [Concomitant]
  17. STERILE WATER (WATER FOR INJECTION) [Concomitant]
  18. SODIUM CHLORIDE 0.9% [Concomitant]

REACTIONS (5)
  - AIR EMBOLISM [None]
  - BRADYCARDIA [None]
  - CARDIAC ARREST [None]
  - CRYING [None]
  - EMOTIONAL DISTRESS [None]
